FAERS Safety Report 8888533 (Version 3)
Quarter: 2014Q2

REPORT INFORMATION
  Report Type: Spontaneous
  Country: US (occurrence: US)
  Receive Date: 20121106
  Receipt Date: 20130810
  Transmission Date: 20141212
  Serious: Yes (Other)
  Sender: FDA-Public Use
  Company Number: US-BAXTER-2012BAX022309

PATIENT
  Age: 59 Year
  Sex: Male
  Weight: 77.18 kg

DRUGS (4)
  1. GAMMAGARD LIQUID [Suspect]
     Indication: IMMUNODEFICIENCY COMMON VARIABLE
     Route: 042
  2. GAMMAGARD S/D [Suspect]
     Indication: IMMUNODEFICIENCY COMMON VARIABLE
     Route: 042
     Dates: start: 1990
  3. GAMMAGARD S/D [Suspect]
     Route: 042
     Dates: start: 1990
  4. GAMMAGARD [Suspect]
     Indication: IMMUNODEFICIENCY COMMON VARIABLE
     Dates: start: 1990

REACTIONS (3)
  - Hepatic failure [Unknown]
  - Hepatic cirrhosis [Unknown]
  - Hepatitis C [Unknown]
